FAERS Safety Report 11829490 (Version 1)
Quarter: 2015Q4

REPORT INFORMATION
  Report Type: Spontaneous
  Country: US (occurrence: US)
  Receive Date: 20151211
  Receipt Date: 20151211
  Transmission Date: 20160305
  Serious: No
  Sender: FDA-Public Use
  Company Number: US-BAUSCH-BL-2015-015722

PATIENT
  Age: 72 Year
  Sex: Male

DRUGS (3)
  1. XENAZINE [Suspect]
     Active Substance: TETRABENAZINE
     Route: 048
     Dates: start: 20150716
  2. XENAZINE [Suspect]
     Active Substance: TETRABENAZINE
     Route: 048
     Dates: start: 20150717
  3. XENAZINE [Suspect]
     Active Substance: TETRABENAZINE
     Indication: HUNTINGTON^S DISEASE
     Route: 048
     Dates: start: 20150618, end: 20150622

REACTIONS (14)
  - Feeling abnormal [Recovered/Resolved]
  - Libido increased [Unknown]
  - Anxiety [Unknown]
  - Cardiac discomfort [Unknown]
  - Hypoaesthesia [Unknown]
  - Hallucination [Unknown]
  - Anger [Unknown]
  - Psychiatric symptom [Recovered/Resolved]
  - Depression [Recovered/Resolved]
  - Somnolence [Unknown]
  - Dyskinesia [Unknown]
  - Pain [Unknown]
  - Disorientation [Unknown]
  - Chest discomfort [Unknown]

NARRATIVE: CASE EVENT DATE: 201506
